FAERS Safety Report 8967091 (Version 1)
Quarter: 2012Q4

REPORT INFORMATION
  Report Type: 
  Country: US (occurrence: US)
  Receive Date: 20121217
  Receipt Date: 20121217
  Transmission Date: 20130627
  Serious: No
  Sender: FDA-Public Use
  Company Number: PHEH2012US024739

PATIENT
  Age: 32 Year
  Sex: Female

DRUGS (6)
  1. TASIGNA [Suspect]
     Indication: CHRONIC MYELOID LEUKAEMIA
     Dosage: 300 mg, BID
     Route: 048
     Dates: start: 20120731
  2. TRAMADOL HCL [Concomitant]
  3. AMBIEN [Concomitant]
  4. TOPAMAX [Concomitant]
  5. EFFEXOR XR [Concomitant]
  6. ROZEREM [Concomitant]

REACTIONS (1)
  - Haematochezia [Unknown]
